FAERS Safety Report 14090454 (Version 3)
Quarter: 2018Q1

REPORT INFORMATION
  Report Type: Spontaneous
  Country: IT (occurrence: IT)
  Receive Date: 20171013
  Receipt Date: 20180119
  Transmission Date: 20180508
  Serious: Yes (Hospitalization)
  Sender: FDA-Public Use
  Company Number: IT-B.I. PHARMACEUTICALS,INC./RIDGEFIELD-2017-BI-055740

PATIENT
  Age: 76 Year
  Sex: Male

DRUGS (4)
  1. OMNIC [Suspect]
     Active Substance: TAMSULOSIN HYDROCHLORIDE
     Indication: BENIGN PROSTATIC HYPERPLASIA
     Route: 048
  2. ENAPREN [Suspect]
     Active Substance: ENALAPRIL MALEATE
     Indication: HYPERTENSION
     Route: 048
  3. TENORMIN [Suspect]
     Active Substance: ATENOLOL
     Indication: HYPERTENSION
     Route: 048
  4. VESSEL (SULODEXIDE) [Suspect]
     Active Substance: SULODEXIDE
     Indication: SKIN ULCER
     Dosage: UNIT DOSE: 250 ULS
     Route: 048

REACTIONS (3)
  - Head injury [Unknown]
  - Skin abrasion [Unknown]
  - Syncope [Unknown]

NARRATIVE: CASE EVENT DATE: 20171003
